FAERS Safety Report 9013325 (Version 1)
Quarter: 2013Q1

REPORT INFORMATION
  Report Type: Spontaneous
  Country: US (occurrence: None)
  Receive Date: 20130107
  Receipt Date: 20130107
  Transmission Date: 20140127
  Serious: Yes (Life-Threatening, Disabling)
  Sender: FDA-Public Use
  Company Number: None

PATIENT
  Age: 64 Year
  Sex: Female
  Weight: 56.7 kg

DRUGS (2)
  1. APIDRA [Suspect]
     Indication: TYPE 1 DIABETES MELLITUS
     Dosage: 0-10 UNITS, AM/PM AS NEEDED, IM
     Route: 030
     Dates: start: 20120828, end: 20120924
  2. LEVEMIR [Suspect]
     Indication: TYPE 1 DIABETES MELLITUS
     Dosage: 12 UNITS, 8 UNITS/ AM, PM, IM
     Route: 030
     Dates: start: 20120815, end: 20120911

REACTIONS (6)
  - Drug effect decreased [None]
  - Fall [None]
  - Periorbital contusion [None]
  - Shock hypoglycaemic [None]
  - Blood pressure increased [None]
  - Drug effect delayed [None]
